FAERS Safety Report 8551841 (Version 7)
Quarter: 2016Q4

REPORT INFORMATION
  Report Type: Report from Study
  Country: RO (occurrence: RO)
  Receive Date: 20120508
  Receipt Date: 20161130
  Transmission Date: 20170207
  Serious: Yes (Hospitalization)
  Sender: FDA-Public Use
  Company Number: RO-ROCHE-1066481

PATIENT
  Sex: Female
  Weight: 56.5 kg

DRUGS (6)
  1. RIBAVIRIN. [Suspect]
     Active Substance: RIBAVIRIN
     Route: 048
     Dates: start: 20120217, end: 20120418
  2. ASCORBIC ACID. [Concomitant]
     Active Substance: ASCORBIC ACID
     Route: 065
     Dates: start: 20120216
  3. ALISPORIVIR [Suspect]
     Active Substance: ALISPORIVIR
     Indication: HEPATITIS C
     Dosage: LAST DOSE PRIOR TO SAE WAS 18/APR/2012
     Route: 048
     Dates: start: 20111127
  4. RIBAVIRIN. [Suspect]
     Active Substance: RIBAVIRIN
     Indication: HEPATITIS C
     Dosage: 400 MG IN MORNING, 600 MG IN EVENING
     Route: 048
     Dates: start: 20111227
  5. PEG-INTERFERON ALFA 2A [Suspect]
     Active Substance: PEGINTERFERON ALFA-2A
     Indication: HEPATITIS C
     Route: 065
     Dates: start: 20111227, end: 20120403
  6. CALCIUM CHLORIDE. [Concomitant]
     Active Substance: CALCIUM CHLORIDE
     Route: 065
     Dates: start: 20120210

REACTIONS (2)
  - Concomitant disease progression [Recovered/Resolved]
  - Pulmonary fibrosis [Recovered/Resolved]
